FAERS Safety Report 21571451 (Version 1)
Quarter: 2022Q4

REPORT INFORMATION
  Report Type: Spontaneous
  Country: US (occurrence: None)
  Receive Date: 20221107
  Receipt Date: 20221107
  Transmission Date: 20230113
  Serious: Yes (Hospitalization)
  Sender: FDA-Public Use
  Company Number: None

PATIENT
  Age: 75 Year
  Sex: Male
  Weight: 85.28 kg

DRUGS (1)
  1. WARFARIN [Suspect]
     Active Substance: WARFARIN
     Indication: Embolic stroke
     Dates: start: 20180927

REACTIONS (2)
  - Haemorrhage intracranial [None]
  - Haemorrhage [None]

NARRATIVE: CASE EVENT DATE: 20220702
